FAERS Safety Report 21125253 (Version 1)
Quarter: 2022Q3

REPORT INFORMATION
  Report Type: Spontaneous
  Country: US (occurrence: None)
  Receive Date: 20220722
  Receipt Date: 20220722
  Transmission Date: 20221026
  Serious: Yes (Other)
  Sender: FDA-Public Use
  Company Number: None

PATIENT

DRUGS (1)
  1. SEMGLEE (INSULIN GLARGINE) [Suspect]
     Active Substance: INSULIN GLARGINE
     Dates: start: 20220517

REACTIONS (2)
  - Diabetes mellitus inadequate control [None]
  - Product substitution issue [None]

NARRATIVE: CASE EVENT DATE: 20220722
